FAERS Safety Report 7219452-7 (Version None)
Quarter: 2011Q1

REPORT INFORMATION
  Report Type: 
  Country: None (occurrence: None)
  Receive Date: 20110111
  Receipt Date: 20101228
  Transmission Date: 20110831
  Serious: Yes (Death)
  Sender: FDA-Public Use
  Company Number: US-JNJFOC-20110100771

PATIENT

DRUGS (7)
  1. DOXORUBICIN HCL [Suspect]
     Indication: DRUG EXPOSURE DURING PREGNANCY
     Route: 015
  2. VINBLASTINE [Suspect]
     Indication: DRUG EXPOSURE DURING PREGNANCY
     Route: 015
  3. FENTANYL [Suspect]
     Indication: DRUG EXPOSURE DURING PREGNANCY
     Route: 015
  4. CYCLOPHOSPHAMIDE [Suspect]
     Indication: DRUG EXPOSURE DURING PREGNANCY
     Route: 015
  5. VINCRISTINE [Suspect]
     Indication: DRUG EXPOSURE DURING PREGNANCY
     Route: 015
  6. DACARBAZINE [Suspect]
     Indication: DRUG EXPOSURE DURING PREGNANCY
     Route: 015
  7. PROPOFOL [Suspect]
     Indication: DRUG EXPOSURE DURING PREGNANCY
     Route: 015

REACTIONS (3)
  - ABORTION INDUCED [None]
  - DRUG EXPOSURE DURING PREGNANCY [None]
  - FOETAL GROWTH RESTRICTION [None]
